FAERS Safety Report 7335814-1 (Version None)
Quarter: 2011Q1

REPORT INFORMATION
  Report Type: 
  Country: None (occurrence: None)
  Receive Date: 20110302
  Receipt Date: 20110302
  Transmission Date: 20110831
  Serious: Yes (Other)
  Sender: FDA-Public Use
  Company Number: None

PATIENT
  Age: 29 Year
  Sex: Male
  Weight: 86.1834 kg

DRUGS (4)
  1. SEROQUEL XR [Suspect]
     Indication: PANIC DISORDER
     Dosage: 300 MG ONCE A DAY PO, 400 MG ONCE A DAY PO
     Route: 048
     Dates: start: 20110115, end: 20110215
  2. SEROQUEL XR [Suspect]
     Indication: INSOMNIA
     Dosage: 300 MG ONCE A DAY PO, 400 MG ONCE A DAY PO
     Route: 048
     Dates: start: 20110115, end: 20110215
  3. SEROQUEL XR [Suspect]
     Indication: PANIC DISORDER
     Dosage: 300 MG ONCE A DAY PO, 400 MG ONCE A DAY PO
     Route: 048
     Dates: start: 20101215, end: 20110115
  4. SEROQUEL XR [Suspect]
     Indication: INSOMNIA
     Dosage: 300 MG ONCE A DAY PO, 400 MG ONCE A DAY PO
     Route: 048
     Dates: start: 20101215, end: 20110115

REACTIONS (5)
  - MALAISE [None]
  - DEPRESSION [None]
  - WEIGHT INCREASED [None]
  - BLOOD PRESSURE INCREASED [None]
  - FEELING ABNORMAL [None]
